FAERS Safety Report 5154404-2 (Version None)
Quarter: 2006Q4

REPORT INFORMATION
  Report Type: 
  Country: None (occurrence: None)
  Receive Date: 20061120
  Receipt Date: 20061006
  Transmission Date: 20070319
  Serious: Yes (Hospitalization)
  Sender: FDA-Public Use
  Company Number: FR-ELI_LILLY_AND_COMPANY-FR200610001097

PATIENT
  Age: 72 Year
  Sex: Female

DRUGS (5)
  1. FORTEO [Suspect]
     Indication: OSTEOPOROSIS
     Dosage: 20 UG, DAILY (1/D)
     Route: 058
     Dates: start: 20060612
  2. OXYCONTIN [Concomitant]
  3. SPASFON [Concomitant]
  4. DOLIPRANE [Concomitant]
  5. LEXOMIL [Concomitant]

REACTIONS (3)
  - ABDOMINAL PAIN [None]
  - DIVERTICULUM INTESTINAL [None]
  - NAUSEA [None]
